FAERS Safety Report 6843645-1 (Version None)
Quarter: 2010Q3

REPORT INFORMATION
  Report Type: 
  Country: None (occurrence: None)
  Receive Date: 20100712
  Receipt Date: 20100629
  Transmission Date: 20110219
  Serious: Yes (Other)
  Sender: FDA-Public Use
  Company Number: 7009655

PATIENT
  Sex: Female

DRUGS (2)
  1. REBIF [Suspect]
     Indication: RELAPSING-REMITTING MULTIPLE SCLEROSIS
     Dosage: 22 MCG, 3 IN 1 WK, SUBCUTANEOUS
     Route: 058
     Dates: start: 20020101
  2. CELEBRA (CELECOXIB) [Concomitant]

REACTIONS (4)
  - HEADACHE [None]
  - INJECTION SITE NODULE [None]
  - OPTIC NEURITIS [None]
  - WRONG TECHNIQUE IN DRUG USAGE PROCESS [None]
